FAERS Safety Report 6983327-9 (Version None)
Quarter: 2010Q3

REPORT INFORMATION
  Report Type: 
  Country: None (occurrence: None)
  Receive Date: 20100910
  Receipt Date: 20100902
  Transmission Date: 20110219
  Serious: Yes (Other)
  Sender: FDA-Public Use
  Company Number: A-NJ2010-36468

PATIENT
  Age: 72 Year
  Sex: Female

DRUGS (1)
  1. TRACLEER [Suspect]
     Indication: PULMONARY ARTERIAL HYPERTENSION
     Dosage: 125 MG, BID, ORAL
     Route: 048
     Dates: start: 20090101, end: 20100403

REACTIONS (7)
  - ABDOMINAL DISTENSION [None]
  - ASCITES [None]
  - GASTRIC DISORDER [None]
  - HEPATIC CIRRHOSIS [None]
  - NAUSEA [None]
  - URINARY TRACT INFECTION [None]
  - WEIGHT INCREASED [None]
